FAERS Safety Report 24331083 (Version 1)
Quarter: 2024Q3

REPORT INFORMATION
  Report Type: Report from Study
  Country: US (occurrence: None)
  Receive Date: 20240918
  Receipt Date: 20240918
  Transmission Date: 20241017
  Serious: Yes (Other)
  Sender: ASTRAZENECA
  Company Number: 2024A212579

PATIENT
  Sex: Female

DRUGS (1)
  1. LYNPARZA [Suspect]
     Active Substance: OLAPARIB
     Indication: Ovarian cancer
     Route: 048
     Dates: start: 20230714

REACTIONS (14)
  - Thrombosis [Unknown]
  - Nervousness [Unknown]
  - Alopecia [Unknown]
  - Renal disorder [Unknown]
  - Blood creatinine increased [Unknown]
  - Nasal dryness [Unknown]
  - Feeling abnormal [Unknown]
  - Sleep disorder [Unknown]
  - Muscle spasms [Unknown]
  - Product dose omission in error [Unknown]
  - Pain [Unknown]
  - Fatigue [Unknown]
  - Dizziness [Unknown]
  - Neuropathy peripheral [Unknown]
